FAERS Safety Report 10169113 (Version 1)
Quarter: 2014Q2

REPORT INFORMATION
  Report Type: Report from Study
  Country: JP (occurrence: JP)
  Receive Date: 20140513
  Receipt Date: 20140513
  Transmission Date: 20141212
  Serious: Yes (Death)
  Sender: FDA-Public Use
  Company Number: JP-SA-2014SA060526

PATIENT
  Age: 9 Year
  Sex: Female
  Weight: 19 kg

DRUGS (15)
  1. THYMOGLOBULINE [Suspect]
     Indication: ACUTE GRAFT VERSUS HOST DISEASE
     Route: 042
     Dates: start: 20120921, end: 20120921
  2. THYMOGLOBULINE [Suspect]
     Indication: ACUTE GRAFT VERSUS HOST DISEASE
     Route: 042
     Dates: start: 20120927, end: 20120927
  3. THYMOGLOBULINE [Suspect]
     Indication: ACUTE GRAFT VERSUS HOST DISEASE
     Route: 042
     Dates: start: 20121007, end: 20121007
  4. CORTICOSTEROID NOS [Suspect]
     Indication: ACUTE GRAFT VERSUS HOST DISEASE
     Route: 065
     Dates: start: 20120907, end: 20120916
  5. METHYLPREDNISOLONE [Concomitant]
     Indication: PROPHYLAXIS
     Dates: start: 20120921, end: 20121007
  6. FUNGUARD [Concomitant]
     Indication: INFECTION PROPHYLAXIS
     Dates: start: 20120718, end: 20121105
  7. GASTER [Concomitant]
     Indication: PROPHYLAXIS AGAINST GASTROINTESTINAL ULCER
     Dates: start: 20120722, end: 20121105
  8. MORPHINE HYDROCHLORIDE [Concomitant]
     Indication: GRAFT VERSUS HOST DISEASE
     Dates: start: 20120807, end: 20121105
  9. FINIBAX [Concomitant]
     Indication: BACTERIAL INFECTION
     Dates: start: 20120814, end: 20120927
  10. AMBISOME [Concomitant]
     Indication: FUNGAL INFECTION
     Dates: start: 20120820, end: 20121105
  11. PREDONINE [Concomitant]
     Indication: PROPHYLAXIS AGAINST GRAFT VERSUS HOST DISEASE
     Dates: start: 20120722, end: 20121105
  12. NOVOLIN R [Concomitant]
     Indication: HYPERGLYCAEMIA
     Dates: start: 20120921, end: 20121105
  13. VICCLOX [Concomitant]
     Indication: ANTIVIRAL PROPHYLAXIS
     Dates: start: 20120719, end: 20121105
  14. TACROLIMUS [Concomitant]
     Indication: PREMEDICATION
     Dates: start: 20120722, end: 20130313
  15. TACROLIMUS [Concomitant]
     Indication: ACUTE GRAFT VERSUS HOST DISEASE
     Dates: start: 20120722, end: 20130313

REACTIONS (1)
  - Neuroblastoma recurrent [Fatal]
